FAERS Safety Report 11990014 (Version 1)
Quarter: 2016Q1

REPORT INFORMATION
  Report Type: Spontaneous
  Country: US (occurrence: US)
  Receive Date: 20160202
  Receipt Date: 20160202
  Transmission Date: 20160526
  Serious: No
  Sender: FDA-Public Use
  Company Number: US-PFIZER INC-2016009357

PATIENT
  Age: 64 Year
  Sex: Female
  Weight: 76 kg

DRUGS (4)
  1. EQUATE [Concomitant]
     Active Substance: UNSPECIFIED INGREDIENT
  2. TYLENOL [Concomitant]
     Active Substance: ACETAMINOPHEN
     Indication: ARTHRITIS
     Dosage: 2 DF, UNK
  3. TYLENOL [Concomitant]
     Active Substance: ACETAMINOPHEN
     Indication: ARTHRALGIA
  4. ADVIL [Suspect]
     Active Substance: IBUPROFEN
     Indication: ARTHRALGIA

REACTIONS (1)
  - Drug ineffective [Unknown]
